FAERS Safety Report 24057430 (Version 1)
Quarter: 2024Q3

REPORT INFORMATION
  Report Type: Spontaneous
  Country: FR (occurrence: FR)
  Receive Date: 20240706
  Receipt Date: 20240706
  Transmission Date: 20241016
  Serious: Yes (Other)
  Sender: AUROBINDO
  Company Number: FR-AFSSAPS-PP2024000717

PATIENT
  Age: 30 Year
  Sex: Male
  Weight: 75 kg

DRUGS (1)
  1. CIPROFLOXACIN [Suspect]
     Active Substance: CIPROFLOXACIN
     Indication: Urinary tract infection
     Dosage: UNK
     Route: 048
     Dates: start: 20240522, end: 20240525

REACTIONS (3)
  - Confusional state [Not Recovered/Not Resolved]
  - Headache [Not Recovered/Not Resolved]
  - Tendon disorder [Not Recovered/Not Resolved]

NARRATIVE: CASE EVENT DATE: 20240525
